FAERS Safety Report 25531615 (Version 2)
Quarter: 2025Q3

REPORT INFORMATION
  Report Type: Spontaneous
  Country: CL (occurrence: CL)
  Receive Date: 20250709
  Receipt Date: 20250729
  Transmission Date: 20251021
  Serious: Yes (Hospitalization, Other)
  Sender: ALEXION PHARMACEUTICALS
  Company Number: CL-AstraZeneca-CH-00903423A

PATIENT
  Age: 60 Year
  Sex: Male
  Weight: 92 kg

DRUGS (9)
  1. FASENRA [Suspect]
     Active Substance: BENRALIZUMAB
     Dosage: 30 MILLIGRAM, Q4W
     Dates: start: 20250701
  2. FASENRA [Suspect]
     Active Substance: BENRALIZUMAB
  3. PREDNISONE [Concomitant]
     Active Substance: PREDNISONE
     Dosage: 20 MILLIGRAM, QD
  4. SULFAMETHOXAZOLE\TRIMETHOPRIM [Concomitant]
     Active Substance: SULFAMETHOXAZOLE\TRIMETHOPRIM
  5. CALCIUM\VITAMIN D [Concomitant]
     Active Substance: CALCIUM\VITAMIN D
  6. Lukanex [Concomitant]
     Dosage: 10 MILLIGRAM, QD
  7. Aerotrop [Concomitant]
     Dosage: UNK, Q6H
  8. BUDESONIDE\FORMOTEROL [Concomitant]
     Active Substance: BUDESONIDE\FORMOTEROL
     Dosage: 160 MICROGRAM PER INHALATION, Q8H
  9. ALBUTEROL [Concomitant]
     Active Substance: ALBUTEROL

REACTIONS (6)
  - Asthma [Unknown]
  - Anaphylactic reaction [Recovered/Resolved]
  - Obstructive airways disorder [Recovered/Resolved]
  - Chills [Recovered/Resolved]
  - Tachycardia [Recovered/Resolved]
  - Bronchial obstruction [Recovered/Resolved]

NARRATIVE: CASE EVENT DATE: 20250701
